FAERS Safety Report 8266037 (Version 9)
Quarter: 2012Q4

REPORT INFORMATION
  Report Type: 
  Country: JP (occurrence: JP)
  Receive Date: 20111129
  Receipt Date: 20121019
  Transmission Date: 20130627
  Serious: Yes (Other)
  Sender: FDA-Public Use
  Company Number: JP-JNJFOC-20110902684

PATIENT
  Age: 30 Year
  Sex: Female

DRUGS (6)
  1. DUROTEP MT [Suspect]
     Indication: PROCEDURAL PAIN
     Route: 062
     Dates: start: 2005, end: 20111027
  2. DUROTEP MT [Suspect]
     Indication: PAIN
     Route: 062
     Dates: start: 2005, end: 20111027
  3. FENTANYL CITRATE [Suspect]
     Indication: GENERAL ANAESTHESIA
     Route: 042
     Dates: start: 20111025, end: 20111025
  4. ULTIVA [Suspect]
     Indication: GENERAL ANAESTHESIA
     Route: 042
     Dates: start: 20111025, end: 20111025
  5. METOCLOPRAMIDE [Suspect]
     Indication: UTERINE CONTRACTIONS DURING PREGNANCY
     Route: 048
  6. MORPHINE HYDROCHLORIDE [Suspect]
     Indication: UTERINE CONTRACTIONS DURING PREGNANCY
     Route: 065
     Dates: start: 2005

REACTIONS (5)
  - Premature labour [Recovered/Resolved]
  - Exposure during pregnancy [Recovered/Resolved]
  - Exposure during pregnancy [Recovered/Resolved]
  - Drug prescribing error [Unknown]
  - Off label use [Unknown]
